FAERS Safety Report 12605704 (Version 1)
Quarter: 2016Q3

REPORT INFORMATION
  Report Type: Spontaneous
  Country: None (occurrence: None)
  Receive Date: 20160728
  Receipt Date: 20160728
  Transmission Date: 20161109
  Serious: Yes (Hospitalization)
  Sender: FDA-Public Use
  Company Number: None

PATIENT
  Age: 76 Year
  Sex: Male

DRUGS (1)
  1. RITUXIMAB [Suspect]
     Active Substance: RITUXIMAB
     Dates: start: 20160606, end: 20160624

REACTIONS (15)
  - Musculoskeletal stiffness [None]
  - Rash [None]
  - Pain in jaw [None]
  - Myalgia [None]
  - West Nile viral infection [None]
  - Arthralgia [None]
  - Vomiting [None]
  - Encephalitis [None]
  - Infection reactivation [None]
  - Feeling abnormal [None]
  - Visual impairment [None]
  - Nausea [None]
  - Musculoskeletal pain [None]
  - Pyrexia [None]
  - Tinnitus [None]

NARRATIVE: CASE EVENT DATE: 20160624
